FAERS Safety Report 16956404 (Version 1)
Quarter: 2019Q4

REPORT INFORMATION
  Report Type: Spontaneous
  Country: JP (occurrence: JP)
  Receive Date: 20191024
  Receipt Date: 20191024
  Transmission Date: 20200122
  Serious: Yes (Other)
  Sender: FDA-Public Use
  Company Number: JP-PFIZER INC-2019452404

PATIENT
  Sex: Male

DRUGS (2)
  1. GENOTROPIN [Suspect]
     Active Substance: SOMATROPIN
  2. GENOTROPIN TC 5.3MG [Suspect]
     Active Substance: SOMATROPIN

REACTIONS (2)
  - Wrong technique in product usage process [Unknown]
  - Internal haemorrhage [Unknown]
